FAERS Safety Report 7982319-0 (Version None)
Quarter: 2011Q4

REPORT INFORMATION
  Report Type: 
  Country: None (occurrence: None)
  Receive Date: 20111215
  Receipt Date: 20111205
  Transmission Date: 20120403
  Serious: Yes (Other)
  Sender: FDA-Public Use
  Company Number: PHHY2010US51209

PATIENT
  Sex: Female

DRUGS (9)
  1. ZITHROMAX [Concomitant]
  2. PEPCID [Concomitant]
     Dosage: 20 MG, BID
     Route: 042
  3. LOVENOX [Concomitant]
     Dosage: 30 MG, QD
  4. REGELAN [Concomitant]
     Route: 042
  5. PROTONIX [Concomitant]
     Dosage: 40 MG, UNK
     Route: 048
  6. AREDIA [Suspect]
     Indication: RESORPTION BONE INCREASED
     Dosage: 90 MG, QMO
     Route: 042
     Dates: start: 20021217, end: 20040726
  7. NYSTATIN [Concomitant]
     Dosage: 5 CM3, QID
     Route: 048
  8. BIAXIN [Concomitant]
     Dosage: 500 MG, BID
  9. ANZEMET [Concomitant]

REACTIONS (18)
  - HYPOXIA [None]
  - CATARACT [None]
  - OSTEOARTHRITIS [None]
  - VISUAL IMPAIRMENT [None]
  - POLYDIPSIA [None]
  - CHRONIC SINUSITIS [None]
  - THIRST [None]
  - WEIGHT ABNORMAL [None]
  - INTERVERTEBRAL DISC DEGENERATION [None]
  - PERIPHERAL VASCULAR DISORDER [None]
  - BONE PAIN [None]
  - GINGIVAL DISORDER [None]
  - TACHYPNOEA [None]
  - LUNG DISORDER [None]
  - RASH [None]
  - DRY MOUTH [None]
  - LYMPH NODE CALCIFICATION [None]
  - HYPERPHAGIA [None]
